FAERS Safety Report 10210506 (Version 1)
Quarter: 2014Q2

REPORT INFORMATION
  Report Type: Report from Study
  Country: DE (occurrence: DE)
  Receive Date: 20140602
  Receipt Date: 20140602
  Transmission Date: 20141212
  Serious: Yes (Other)
  Sender: FDA-Public Use
  Company Number: DE-GILEAD-2014-0103323

PATIENT
  Age: 61 Year
  Sex: Male
  Weight: 62 kg

DRUGS (41)
  1. SOFOSBUVIR [Suspect]
     Indication: PRODUCT USED FOR UNKNOWN INDICATION
     Dosage: 400 MG, UNK
     Route: 065
     Dates: start: 20140220
  2. SOFOSBUVIR [Suspect]
     Dosage: 400 MG, UNK
     Route: 065
     Dates: start: 20140227
  3. SOFOSBUVIR [Suspect]
     Dosage: 400 MG, UNK
     Route: 065
     Dates: start: 20140306
  4. SIMEPREVIR [Suspect]
     Indication: HEPATITIS C
     Dosage: 150 MG ONCE EVERY 2 DAYS
     Route: 048
     Dates: start: 20140220
  5. SIMEPREVIR [Suspect]
     Dosage: 150 MG, QD
     Route: 048
     Dates: start: 20140220
  6. SIMEPREVIR [Suspect]
     Dosage: 150 MG, QD
     Route: 048
     Dates: start: 20140227
  7. SIMEPREVIR [Suspect]
     Dosage: 150 MG, QD
     Route: 048
     Dates: start: 20140306
  8. COPEGUS [Suspect]
     Indication: PRODUCT USED FOR UNKNOWN INDICATION
     Dosage: 200 MG, UNK
     Route: 065
     Dates: start: 20140220
  9. COPEGUS [Suspect]
     Dosage: 200 MG, UNK
     Route: 065
     Dates: start: 20140227
  10. COPEGUS [Suspect]
     Dosage: 200 MG, UNK
     Route: 065
     Dates: start: 20140306
  11. RAPAMUNE [Concomitant]
     Indication: PRODUCT USED FOR UNKNOWN INDICATION
     Dosage: IN 1 DAY
     Dates: start: 20140220
  12. RAPAMUNE [Concomitant]
     Dosage: IN 1 DAY
     Dates: start: 20140227
  13. RAPAMUNE [Concomitant]
     Dosage: IN 1 DAY
     Dates: start: 20140306
  14. PREDNISOLONE [Concomitant]
     Indication: PRODUCT USED FOR UNKNOWN INDICATION
     Dosage: UNK
     Route: 065
     Dates: start: 20140220
  15. PREDNISOLONE [Concomitant]
     Dosage: 5 MG, UNK
     Route: 065
     Dates: start: 20140227
  16. PREDNISOLONE [Concomitant]
     Dosage: 5 MG, UNK
     Route: 065
     Dates: start: 20140306
  17. CITALOPRAM [Concomitant]
     Indication: PRODUCT USED FOR UNKNOWN INDICATION
     Dosage: UNK
     Route: 065
     Dates: start: 20140220
  18. CITALOPRAM [Concomitant]
     Dosage: 0-0-1
     Route: 065
     Dates: start: 20140227
  19. CITALOPRAM [Concomitant]
     Dosage: 10 MG, UNK
     Route: 065
     Dates: start: 20140306
  20. URSOFALK [Concomitant]
     Indication: PRODUCT USED FOR UNKNOWN INDICATION
     Dosage: UNK
     Route: 065
     Dates: start: 20140220
  21. URSOFALK [Concomitant]
     Dosage: 1-1-1
     Route: 065
     Dates: start: 20140227
  22. URSOFALK [Concomitant]
     Dosage: 500 MG, UNK
     Route: 065
     Dates: start: 20140306
  23. VIGANTOLETTEN [Concomitant]
     Indication: PRODUCT USED FOR UNKNOWN INDICATION
     Dosage: UNK
     Route: 065
     Dates: start: 20140220
  24. VIGANTOLETTEN [Concomitant]
     Dosage: 1-0-0
     Route: 065
     Dates: start: 20140227
  25. VIGANTOLETTEN [Concomitant]
     Dosage: 1000, 1-0-0
     Route: 065
     Dates: start: 20140306
  26. LACTULOSE [Concomitant]
     Indication: PRODUCT USED FOR UNKNOWN INDICATION
     Dosage: UNK
     Route: 065
     Dates: start: 20140220
  27. LACTULOSE [Concomitant]
     Dosage: 30 ML, IN 1 AS NECESSARY
     Route: 065
     Dates: start: 20140227
  28. LACTULOSE [Concomitant]
     Dosage: 30 ML, IN 1 AS NECESSARY
     Route: 065
     Dates: start: 20140306
  29. HEPA MERZ [Concomitant]
     Indication: PRODUCT USED FOR UNKNOWN INDICATION
     Dosage: UNK
     Dates: start: 20140220
  30. HEPA MERZ [Concomitant]
     Dosage: UNK
     Dates: start: 20140227
  31. HEPA MERZ [Concomitant]
     Dosage: 3.0000, 1-0-1
     Dates: start: 20140306
  32. TORASEMID [Concomitant]
     Indication: PRODUCT USED FOR UNKNOWN INDICATION
     Dosage: 10 MG, UNK
     Route: 065
     Dates: start: 20140220
  33. TORASEMID [Concomitant]
     Dosage: 10 MG, UNK
     Route: 065
     Dates: start: 20140227
  34. TORASEMID [Concomitant]
     Dosage: 10 MG, UNK
     Route: 065
     Dates: start: 20140306
  35. SPIRONOLACTONE [Concomitant]
     Indication: PRODUCT USED FOR UNKNOWN INDICATION
     Dosage: UNK
     Dates: start: 20140220
  36. SPIRONOLACTONE [Concomitant]
     Dosage: 300-0-0 INCREASED
     Dates: start: 20140227
  37. SPIRONOLACTONE [Concomitant]
     Dosage: 300-0-0 INCREASED
     Dates: start: 20140306
  38. MAGNESIUM VERLA                    /00648601/ [Concomitant]
     Indication: PRODUCT USED FOR UNKNOWN INDICATION
     Dosage: IN 1 AS NECESSARY
     Route: 065
  39. MAGNESIUM VERLA                    /00648601/ [Concomitant]
     Dosage: IN 1 AS NECESSARY
     Route: 065
  40. MAGNESIUM VERLA                    /00648601/ [Concomitant]
     Dosage: IN 1 AS NECESSARY
     Route: 065
  41. UNACID                             /00903602/ [Concomitant]
     Dosage: 375 MG, UNK
     Route: 065
     Dates: start: 20140313

REACTIONS (3)
  - Hepatic encephalopathy [Not Recovered/Not Resolved]
  - Anaemia [Recovered/Resolved]
  - Asthenia [Not Recovered/Not Resolved]
